FAERS Safety Report 7942068-1 (Version None)
Quarter: 2011Q4

REPORT INFORMATION
  Report Type: 
  Country: None (occurrence: None)
  Receive Date: 20111128
  Receipt Date: 20111128
  Transmission Date: 20120403
  Serious: Yes (Other)
  Sender: FDA-Public Use
  Company Number: None

PATIENT
  Age: 16 Year
  Sex: Female
  Weight: 48.987 kg

DRUGS (1)
  1. LACTASE PILLS [Suspect]
     Indication: FLATULENCE
     Dosage: 2 PILLS
     Route: 048
     Dates: start: 20111127, end: 20111127

REACTIONS (5)
  - VOMITING [None]
  - THROAT IRRITATION [None]
  - LIP SWELLING [None]
  - URTICARIA [None]
  - HYPERSENSITIVITY [None]
